FAERS Safety Report 6598817-0 (Version None)
Quarter: 2010Q1

REPORT INFORMATION
  Report Type: 
  Country: None (occurrence: None)
  Receive Date: 20100216
  Receipt Date: 20100204
  Transmission Date: 20100710
  Serious: Yes (Hospitalization)
  Sender: FDA-Public Use
  Company Number: 2009-04557

PATIENT
  Age: 69 Year
  Sex: Male
  Weight: 61 kg

DRUGS (14)
  1. VELCADE [Suspect]
     Indication: MULTIPLE MYELOMA
     Dosage: 2.1 MG, INTRAVENOUS
     Route: 042
     Dates: start: 20090724, end: 20090803
  2. DECADRON [Suspect]
     Indication: MULTIPLE MYELOMA
     Dosage: 20 MG, ORAL
     Route: 048
     Dates: start: 20090724, end: 20090804
  3. ZOVIRAX /00587301/ (ACICLOVIR) [Concomitant]
  4. PROTECADIN (LAFUTIDINE) [Concomitant]
  5. HARNAL (TAMSULOSIN HYDROCHLORIDE) [Concomitant]
  6. EVIPROSTAT /01150001/ (CHIMAPHILA UMBELLATA, EQUISETUM ARVENSE, MANGAN [Concomitant]
  7. UBRETID (DISTIGMINE BROMIDE) [Concomitant]
  8. DIOVAN [Concomitant]
  9. AMLODIPINE BESYLATE [Concomitant]
  10. SULFAMETHOXAZOLE AND TRIMETHOPRIM [Concomitant]
  11. ITRACONAZOLE [Concomitant]
  12. MAGMITT (MAGNESIUM OXIDE) [Concomitant]
  13. RED BLOOD CELLS [Concomitant]
  14. PLATELETS, CONCENTRATED (PLATELETS, CONCENTRATED) [Concomitant]

REACTIONS (7)
  - COLLAPSE OF LUNG [None]
  - DUODENAL ULCER HAEMORRHAGE [None]
  - GENERAL PHYSICAL HEALTH DETERIORATION [None]
  - HAEMOGLOBIN DECREASED [None]
  - PLATELET COUNT DECREASED [None]
  - PNEUMONIA ASPIRATION [None]
  - SHOCK HAEMORRHAGIC [None]
